FAERS Safety Report 5317565-8 (Version None)
Quarter: 2007Q2

REPORT INFORMATION
  Report Type: 
  Country: None (occurrence: None)
  Receive Date: 20070507
  Receipt Date: 20070429
  Transmission Date: 20071010
  Serious: Yes (Life-Threatening, Hospitalization, Other)
  Sender: FDA-Public Use
  Company Number: PHEH2007US06613

PATIENT
  Age: 50 Year
  Sex: Female

DRUGS (2)
  1. PROLEUKIN [Suspect]
  2. BEVACIZUMAB [Suspect]

REACTIONS (14)
  - CARDIAC FAILURE CONGESTIVE [None]
  - CATHETERISATION CARDIAC ABNORMAL [None]
  - DYSPNOEA [None]
  - EJECTION FRACTION DECREASED [None]
  - LEFT VENTRICULAR END-DIASTOLIC PRESSURE INCREASED [None]
  - MYOCARDIAL INFARCTION [None]
  - MYOCARDIAL ISCHAEMIA [None]
  - NAUSEA [None]
  - PNEUMONIA [None]
  - SINUS TACHYCARDIA [None]
  - TROPONIN INCREASED [None]
  - VENTRICULAR DYSFUNCTION [None]
  - VOMITING [None]
  - WHITE BLOOD CELL COUNT INCREASED [None]
